FAERS Safety Report 19887178 (Version 2)
Quarter: 2021Q3

REPORT INFORMATION
  Report Type: Report from Study
  Country: CA (occurrence: CA)
  Receive Date: 20210928
  Receipt Date: 20210930
  Transmission Date: 20211014
  Serious: Yes (Hospitalization, Other)
  Sender: FDA-Public Use
  Company Number: CA-IPSEN BIOPHARMACEUTICALS, INC.-2021-23094

PATIENT
  Age: 67 Year
  Sex: Male

DRUGS (14)
  1. FERROUS GLUCONATE [Concomitant]
     Active Substance: FERROUS GLUCONATE
  2. METONIA [Concomitant]
     Active Substance: METOCLOPRAMIDE
  3. GAVISCON PRN [Concomitant]
  4. PANTOLOC [Concomitant]
     Active Substance: PANTOPRAZOLE SODIUM
     Dosage: DIE
  5. LASIX [Concomitant]
     Active Substance: FUROSEMIDE
     Dosage: DIE
  6. METFORMIN [Concomitant]
     Active Substance: METFORMIN HYDROCHLORIDE
  7. SPIRONOLACTONE. [Concomitant]
     Active Substance: SPIRONOLACTONE
     Dosage: DIE
  8. SOMATULINE AUTOGEL [Suspect]
     Active Substance: LANREOTIDE ACETATE
     Indication: NEUROENDOCRINE TUMOUR
     Dosage: 120 MG EVERY 4 WEEKS
     Route: 058
     Dates: start: 20210913
  9. INVOKANA [Concomitant]
     Active Substance: CANAGLIFLOZIN
  10. IMODIUM PRN [Concomitant]
  11. HYDROMORPHONE [Concomitant]
     Active Substance: HYDROMORPHONE
  12. FORMULA FORTE [Concomitant]
  13. HYDROMORPHONE [Concomitant]
     Active Substance: HYDROMORPHONE
  14. VITAMIN D [Concomitant]
     Active Substance: VITAMIN D NOS

REACTIONS (6)
  - Ocular icterus [Unknown]
  - Yellow skin [Unknown]
  - Device occlusion [Unknown]
  - Haematemesis [Unknown]
  - Nausea [Unknown]
  - Vomiting [Unknown]

NARRATIVE: CASE EVENT DATE: 202109
